FAERS Safety Report 6074871-X (Version None)
Quarter: 2009Q1

REPORT INFORMATION
  Report Type: 
  Country: None (occurrence: None)
  Receive Date: 20090210
  Receipt Date: 20090129
  Transmission Date: 20090719
  Serious: Yes (Other)
  Sender: FDA-Public Use
  Company Number: SPV1-2009-00152

PATIENT
  Age: 49 Year
  Sex: Female
  Weight: 99.8 kg

DRUGS (8)
  1. LIALDA [Suspect]
     Indication: COLITIS ULCERATIVE
     Dosage: DF, 2X/DAY, BID; ORAL
     Route: 048
     Dates: start: 20090101, end: 20090101
  2. LYRICA [Concomitant]
  3. CYMBALTA [Concomitant]
  4. BACLOFEN [Concomitant]
  5. PEROCET (OXYCODONE HYDROCHLORIDE, OXYCODONE TEREPHTHALATE, PARACETAMOL [Concomitant]
  6. SIMVASTATIN [Concomitant]
  7. LUNESTA [Concomitant]
  8. NASACORT [Concomitant]

REACTIONS (3)
  - BACK PAIN [None]
  - DYSPNOEA [None]
  - TREMOR [None]
